FAERS Safety Report 11276697 (Version 1)
Quarter: 2015Q3

REPORT INFORMATION
  Report Type: Spontaneous
  Country: US (occurrence: None)
  Receive Date: 20150715
  Receipt Date: 20150715
  Transmission Date: 20151125
  Serious: Yes (Other)
  Sender: FDA-Public Use
  Company Number: None

PATIENT
  Age: 57 Year
  Sex: Female
  Weight: 83.92 kg

DRUGS (7)
  1. MAGNESIUM [Concomitant]
     Active Substance: MAGNESIUM
  2. VERAPRAMIL [Concomitant]
  3. HCTZ [Suspect]
     Active Substance: HYDROCHLOROTHIAZIDE
     Indication: FLUID RETENTION
     Route: 048
     Dates: start: 20150401, end: 20150714
  4. FLAXSEED GROUND [Concomitant]
  5. GERITOL LIQUID IRON SUPPLEMENT [Concomitant]
  6. POTASSIUM [Concomitant]
     Active Substance: POTASSIUM
  7. HCTZ [Concomitant]
     Active Substance: HYDROCHLOROTHIAZIDE

REACTIONS (1)
  - Weight increased [None]

NARRATIVE: CASE EVENT DATE: 20150714
